FAERS Safety Report 17796083 (Version 1)
Quarter: 2020Q2

REPORT INFORMATION
  Report Type: Report from Study
  Country: US (occurrence: US)
  Receive Date: 20200517
  Receipt Date: 20200517
  Transmission Date: 20200714
  Serious: Yes (Other)
  Sender: FDA-Public Use
  Company Number: US-TEVA-2020-US-1236839

PATIENT
  Age: 66 Year
  Sex: Male

DRUGS (3)
  1. PREDNISONE. [Suspect]
     Active Substance: PREDNISONE
     Indication: ACQUIRED EPIDERMOLYSIS BULLOSA
     Dosage: 15 MILLIGRAM DAILY;
     Route: 065
  2. MYCOPHENOLATE MOFETIL. [Suspect]
     Active Substance: MYCOPHENOLATE MOFETIL
     Indication: ACQUIRED EPIDERMOLYSIS BULLOSA
     Dosage: 3 GRAM DAILY;
     Route: 065
  3. RITUXIMAB. [Suspect]
     Active Substance: RITUXIMAB
     Indication: ACQUIRED EPIDERMOLYSIS BULLOSA
     Dosage: RECEIVED 1CYCLE OF RITUXIMAB 375MG/M2 WEEKLY FOR 4 WEEKS (LYMPHOMA DOSE).
     Route: 065

REACTIONS (2)
  - Cellulitis [Unknown]
  - Drug ineffective [Unknown]
